FAERS Safety Report 6243082-7 (Version None)
Quarter: 2009Q2

REPORT INFORMATION
  Report Type: 
  Country: None (occurrence: None)
  Receive Date: 20090617
  Receipt Date: 20080516
  Transmission Date: 20091009
  Serious: No
  Sender: FDA-Public Use
  Company Number: 275338

PATIENT
  Age: 69 Year
  Sex: Male

DRUGS (2)
  1. LEVEMIR [Suspect]
     Indication: INSULIN-REQUIRING TYPE 2 DIABETES MELLITUS
     Dosage: 20 IU, SUBCUTANEOUS : 58 IU, SUBCUTANEOUS
     Route: 058
     Dates: start: 20080502
  2. LEVEMIR [Suspect]
     Indication: INSULIN-REQUIRING TYPE 2 DIABETES MELLITUS
     Dosage: 20 IU, SUBCUTANEOUS : 58 IU, SUBCUTANEOUS
     Route: 058
     Dates: start: 20080515

REACTIONS (3)
  - BLOOD GLUCOSE INCREASED [None]
  - INSOMNIA [None]
  - POLLAKIURIA [None]
